FAERS Safety Report 5464396-4 (Version None)
Quarter: 2007Q3

REPORT INFORMATION
  Report Type: 
  Country: None (occurrence: None)
  Receive Date: 20070921
  Receipt Date: 20070910
  Transmission Date: 20080115
  Serious: Yes (Other)
  Sender: FDA-Public Use
  Company Number: JP-ASTRAZENECA-2007AP05781

PATIENT
  Age: 32 Year
  Sex: Female

DRUGS (1)
  1. ZOLADEX BN [Suspect]
     Indication: ENDOMETRIOSIS
     Route: 058

REACTIONS (1)
  - INJECTION SITE HAEMORRHAGE [None]
